FAERS Safety Report 14591992 (Version 1)
Quarter: 2018Q1

REPORT INFORMATION
  Report Type: Spontaneous
  Country: US (occurrence: US)
  Receive Date: 20180302
  Receipt Date: 20180302
  Transmission Date: 20180509
  Serious: No
  Sender: FDA-Public Use
  Company Number: US-NOVOPROD-543094

PATIENT
  Sex: Female

DRUGS (3)
  1. AMLODIPINE [Concomitant]
     Active Substance: AMLODIPINE BESYLATE
     Indication: DIURETIC THERAPY
     Route: 048
  2. VICTOZA [Suspect]
     Active Substance: LIRAGLUTIDE
     Indication: GLUCOSE TOLERANCE IMPAIRED
     Dosage: 2-CLICKS PAST THE 0.6 MG DOSE
     Route: 058
     Dates: start: 20170209
  3. LISINOPRIL. [Concomitant]
     Active Substance: LISINOPRIL
     Indication: BLOOD PRESSURE INCREASED
     Route: 048

REACTIONS (3)
  - Blood potassium decreased [Unknown]
  - Nausea [Recovering/Resolving]
  - Headache [Not Recovered/Not Resolved]

NARRATIVE: CASE EVENT DATE: 201702
